FAERS Safety Report 8458371-5 (Version None)
Quarter: 2012Q2

REPORT INFORMATION
  Report Type: 
  Country: None (occurrence: None)
  Receive Date: 20120323
  Receipt Date: 20111026
  Transmission Date: 20120825
  Serious: Yes (Other)
  Sender: FDA-Public Use
  Company Number: 163-21880-11103286

PATIENT
  Age: 80 Year
  Sex: Male

DRUGS (9)
  1. ACYCLOVIR [Concomitant]
  2. ASPIRIN [Concomitant]
  3. OCMBIVENT (COMBIVENT) [Concomitant]
  4. DEXAMETHASONE (DEXAMETHASONE) [Concomitant]
  5. LOMOTIL [Concomitant]
  6. NEURONTIN [Concomitant]
  7. REVLIMID [Suspect]
     Indication: MULTIPLE MYELOMA
     Dosage: 10 MG, DAILY, PO
     Route: 048
     Dates: start: 20110401, end: 20111026
  8. CLARITIN [Concomitant]
  9. SINEMET [Concomitant]

REACTIONS (1)
  - RECTAL HAEMORRHAGE [None]
